FAERS Safety Report 7777530-8 (Version None)
Quarter: 2011Q3

REPORT INFORMATION
  Report Type: 
  Country: None (occurrence: None)
  Receive Date: 20110926
  Receipt Date: 20110912
  Transmission Date: 20111222
  Serious: Yes (Other)
  Sender: FDA-Public Use
  Company Number: CA-ELI_LILLY_AND_COMPANY-CA201109002917

PATIENT
  Sex: Female

DRUGS (12)
  1. AVENTYL HYDROCHLORIDE [Concomitant]
  2. REMERON [Concomitant]
  3. DETROL [Concomitant]
  4. SERAX [Concomitant]
  5. CLONAZEPAM [Concomitant]
  6. VALPROATE SODIUM [Concomitant]
  7. NEURONTIN [Concomitant]
  8. LUVOX [Concomitant]
  9. RITALIN [Concomitant]
  10. ANAFRANIL [Concomitant]
  11. ZYPREXA [Suspect]
     Indication: BIPOLAR DISORDER
     Dosage: 5 MG, QD
     Dates: end: 20030809
  12. WELLBUTRIN [Concomitant]

REACTIONS (8)
  - MYOPIA [None]
  - EJECTION FRACTION DECREASED [None]
  - HYPERGLYCAEMIA [None]
  - HYPERLIPIDAEMIA [None]
  - VIRAL CARDIOMYOPATHY [None]
  - WEIGHT INCREASED [None]
  - HYPERTENSION [None]
  - DIABETES MELLITUS [None]
